FAERS Safety Report 20090658 (Version 1)
Quarter: 2021Q4

REPORT INFORMATION
  Report Type: Spontaneous
  Country: US (occurrence: None)
  Receive Date: 20211118
  Receipt Date: 20211118
  Transmission Date: 20220303
  Serious: Yes (Other)
  Sender: FDA-Public Use
  Company Number: None

PATIENT
  Age: 77 Year
  Sex: Female
  Weight: 95 kg

DRUGS (1)
  1. HIZENTRA [Suspect]
     Active Substance: HUMAN IMMUNOGLOBULIN G
     Indication: Inclusion body myositis
     Dosage: FREQUENCY : WEEKLY;?
     Route: 058
     Dates: start: 20210305

REACTIONS (5)
  - Infusion related reaction [None]
  - Recalled product administered [None]
  - Infusion site pain [None]
  - Infusion site urticaria [None]
  - Abdominal pain [None]

NARRATIVE: CASE EVENT DATE: 20211111
